FAERS Safety Report 19168417 (Version 1)
Quarter: 2021Q2

REPORT INFORMATION
  Report Type: Spontaneous
  Country: TR (occurrence: TR)
  Receive Date: 20210422
  Receipt Date: 20210422
  Transmission Date: 20210717
  Serious: Yes (Hospitalization)
  Sender: FDA-Public Use
  Company Number: TR-CURIUM-201500468

PATIENT
  Age: 23 Year
  Sex: Female

DRUGS (4)
  1. SODIUM IODIDE I 131 [Suspect]
     Active Substance: SODIUM IODIDE I-131
     Route: 065
  2. SODIUM IODIDE I?131. [Suspect]
     Active Substance: SODIUM IODIDE I-131
     Route: 065
  3. LEVOTHYROXINE. [Concomitant]
     Active Substance: LEVOTHYROXINE
     Dosage: UNK
  4. TRIIODOTHYRONINE [Concomitant]
     Active Substance: LIOTHYRONINE SODIUM
     Dosage: UNK MCI, UNK

REACTIONS (1)
  - Oesophagitis [Recovered/Resolved]
